FAERS Safety Report 18405071 (Version 1)
Quarter: 2020Q4

REPORT INFORMATION
  Report Type: Spontaneous
  Country: CA (occurrence: CA)
  Receive Date: 20201020
  Receipt Date: 20201020
  Transmission Date: 20210114
  Serious: Yes (Disabling)
  Sender: FDA-Public Use
  Company Number: NVSC2020CA280226

PATIENT
  Age: 87 Year
  Sex: Male

DRUGS (3)
  1. LIXIANA [Concomitant]
     Active Substance: EDOXABAN TOSYLATE
     Indication: PRODUCT USED FOR UNKNOWN INDICATION
     Dosage: UNK
     Route: 065
  2. SANDOZ TAMSULOSIN SR [Suspect]
     Active Substance: TAMSULOSIN
     Indication: BENIGN PROSTATIC HYPERPLASIA
     Dosage: 0.4 MG, QD
     Route: 048
  3. PANTOPRAZOLE [Concomitant]
     Active Substance: PANTOPRAZOLE
     Indication: PRODUCT USED FOR UNKNOWN INDICATION
     Dosage: UNK
     Route: 042

REACTIONS (10)
  - Balance disorder [Unknown]
  - Fatigue [Unknown]
  - Fine motor skill dysfunction [Unknown]
  - Somnolence [Unknown]
  - Feeling drunk [Unknown]
  - Food interaction [Unknown]
  - Hypoaesthesia [Unknown]
  - Dizziness [Unknown]
  - Gait disturbance [Unknown]
  - Asthenia [Unknown]
